FAERS Safety Report 9252688 (Version 2)
Quarter: 2013Q2

REPORT INFORMATION
  Report Type: Spontaneous
  Country: JP (occurrence: JP)
  Receive Date: 20130424
  Receipt Date: 20130523
  Transmission Date: 20140414
  Serious: Yes (Other)
  Sender: FDA-Public Use
  Company Number: JP-GLAXOSMITHKLINE-B0886021A

PATIENT
  Sex: 0

DRUGS (1)
  1. ZANTAC [Suspect]
     Indication: ANAESTHETIC PREMEDICATION
     Route: 042
     Dates: start: 20130418

REACTIONS (2)
  - Shock [Unknown]
  - Blood pressure decreased [Unknown]
